FAERS Safety Report 16715002 (Version 2)
Quarter: 2019Q3

REPORT INFORMATION
  Report Type: Report from Study
  Country: DE (occurrence: DE)
  Receive Date: 20190819
  Receipt Date: 20190826
  Transmission Date: 20191005
  Serious: Yes (Other)
  Sender: FDA-Public Use
  Company Number: DE-MYLANLABS-2019M1076592

PATIENT
  Age: 58 Year
  Sex: Female
  Weight: 90 kg

DRUGS (1)
  1. CLIFT [GLATIRAMER ACETATE] [Suspect]
     Active Substance: GLATIRAMER ACETATE
     Indication: MULTIPLE SCLEROSIS
     Dosage: 20 MILLIGRAM (ONE WEEK)
     Route: 058
     Dates: start: 20190805

REACTIONS (3)
  - Migraine [Recovered/Resolved]
  - Abdominal pain [Recovered/Resolved]
  - Suicidal ideation [Recovered/Resolved]

NARRATIVE: CASE EVENT DATE: 20190810
